FAERS Safety Report 7503412-2 (Version None)
Quarter: 2011Q2

REPORT INFORMATION
  Report Type: 
  Country: None (occurrence: None)
  Receive Date: 20110525
  Receipt Date: 20110519
  Transmission Date: 20111010
  Serious: Yes (Hospitalization)
  Sender: FDA-Public Use
  Company Number: B0720931A

PATIENT
  Sex: Male
  Weight: 67 kg

DRUGS (6)
  1. KIPRES [Concomitant]
     Dosage: 10MG PER DAY
     Route: 048
  2. SPIRIVA [Concomitant]
     Indication: EMPHYSEMA
     Dosage: 18MCG PER DAY
     Route: 055
  3. TIZANIDINE HYDROCHLORIDE [Concomitant]
     Dosage: 3MG PER DAY
     Route: 048
     Dates: start: 20091127
  4. SERETIDE (50MCG/250MCG) [Suspect]
     Indication: EMPHYSEMA
     Dosage: 500MCG PER DAY
     Route: 055
     Dates: start: 20091127
  5. ZOLPIDEM [Concomitant]
     Dosage: 10MG PER DAY
     Route: 048
  6. THEO-DUR [Concomitant]
     Indication: EMPHYSEMA
     Dosage: 400MG PER DAY
     Route: 048

REACTIONS (2)
  - PNEUMONIA BACTERIAL [None]
  - ENTERITIS INFECTIOUS [None]
